FAERS Safety Report 9322371 (Version 3)
Quarter: 2013Q2

REPORT INFORMATION
  Report Type: Spontaneous
  Country: US (occurrence: US)
  Receive Date: 20130531
  Receipt Date: 20130620
  Transmission Date: 20140414
  Serious: Yes (Other)
  Sender: FDA-Public Use
  Company Number: US-PFIZER INC-2013162284

PATIENT
  Age: 30 Year
  Sex: Male

DRUGS (1)
  1. BENEFIX [Suspect]
     Indication: FACTOR IX DEFICIENCY
     Dosage: 5000 IU, CYCLIC (3 TIMES WEEKLY)

REACTIONS (3)
  - Haemorrhage [Unknown]
  - Fall [Unknown]
  - Mouth haemorrhage [Unknown]
